FAERS Safety Report 10037241 (Version 1)
Quarter: 2014Q1

REPORT INFORMATION
  Report Type: Report from Study
  Country: US (occurrence: US)
  Receive Date: 20140326
  Receipt Date: 20140326
  Transmission Date: 20141002
  Serious: No
  Sender: FDA-Public Use
  Company Number: PHEH2014US005811

PATIENT
  Sex: Female
  Weight: 56 kg

DRUGS (9)
  1. TASIGNA [Suspect]
     Indication: CHRONIC MYELOID LEUKAEMIA
     Dosage: 300 MG, BID
     Route: 048
     Dates: start: 20140131, end: 20140320
  2. HYDROCODONE [Concomitant]
     Dosage: UNK UKN, UNK
  3. ACETAMINOPHEN [Concomitant]
     Dosage: UNK UKN, UNK
  4. KLOR-CON [Concomitant]
     Dosage: UNK UKN, UNK
  5. ONDANSETRON [Concomitant]
     Dosage: UNK UKN, UNK
  6. LEVOQUIN [Concomitant]
     Dosage: UNK UKN, UNK
  7. ALBUTEROL [Concomitant]
     Dosage: UNK UKN, UNK
  8. PREMARIN [Concomitant]
     Dosage: UNK UKN, UNK
  9. RIZATRIPTAN [Concomitant]
     Dosage: UNK UKN, UNK

REACTIONS (1)
  - Abdominal pain upper [Unknown]
